FAERS Safety Report 17676218 (Version 1)
Quarter: 2020Q2

REPORT INFORMATION
  Report Type: Spontaneous
  Country: US (occurrence: US)
  Receive Date: 20200415
  Receipt Date: 20200415
  Transmission Date: 20200714
  Serious: Yes (Hospitalization)
  Sender: FDA-Public Use
  Company Number: None

PATIENT
  Sex: Female

DRUGS (12)
  1. ONDANSETRON [Concomitant]
     Active Substance: ONDANSETRON
  2. SILACE [Concomitant]
     Active Substance: DOCUSATE SODIUM
  3. LISINOPRIL. [Concomitant]
     Active Substance: LISINOPRIL
  4. ELIQUIS [Concomitant]
     Active Substance: APIXABAN
  5. BISOPRL/HCTZ [Concomitant]
  6. VERZENIO [Suspect]
     Active Substance: ABEMACICLIB
     Indication: BREAST CANCER FEMALE
     Dosage: ?          OTHER DOSE:1 TAB;?
     Route: 048
     Dates: start: 20200125
  7. LEVETIRACETA [Concomitant]
  8. LORAZEPAM. [Concomitant]
     Active Substance: LORAZEPAM
  9. DEXAMETHASONE. [Concomitant]
     Active Substance: DEXAMETHASONE
  10. TRAMADOL HCL [Concomitant]
     Active Substance: TRAMADOL HYDROCHLORIDE
  11. AMLODIPINE [Concomitant]
     Active Substance: AMLODIPINE BESYLATE
  12. ANASTROZOLE. [Concomitant]
     Active Substance: ANASTROZOLE

REACTIONS (2)
  - White blood cell count decreased [None]
  - Therapy interrupted [None]
